FAERS Safety Report 11412649 (Version 2)
Quarter: 2015Q3

REPORT INFORMATION
  Report Type: Spontaneous
  Country: US (occurrence: US)
  Receive Date: 20150821
  Receipt Date: 20150903
  Transmission Date: 20151125
  Serious: No
  Sender: FDA-Public Use
  Company Number: US-ELI_LILLY_AND_COMPANY-US201108006810

PATIENT
  Sex: Female

DRUGS (7)
  1. HUMALOG [Suspect]
     Active Substance: INSULIN LISPRO
     Indication: TYPE 1 DIABETES MELLITUS
     Dosage: UNK, PRN
  2. HUMULIN R [Suspect]
     Active Substance: INSULIN HUMAN
     Indication: TYPE 1 DIABETES MELLITUS
     Dosage: 4 U, EACH MORNING
  3. HUMULIN R [Suspect]
     Active Substance: INSULIN HUMAN
     Dosage: 2 U, EACH EVENING
  4. HUMULIN R [Suspect]
     Active Substance: INSULIN HUMAN
     Dosage: 3 U, OTHER
  5. HUMULIN R [Suspect]
     Active Substance: INSULIN HUMAN
     Dosage: 2 U, EACH EVENING
  6. HUMULIN R [Suspect]
     Active Substance: INSULIN HUMAN
     Dosage: 3 U, OTHER
  7. HUMULIN R [Suspect]
     Active Substance: INSULIN HUMAN
     Dosage: 4 U, EACH MORNING

REACTIONS (1)
  - Blood glucose increased [Recovered/Resolved]
